FAERS Safety Report 5735223-2 (Version None)
Quarter: 2008Q2

REPORT INFORMATION
  Report Type: 
  Country: None (occurrence: None)
  Receive Date: 20080512
  Receipt Date: 20080324
  Transmission Date: 20081010
  Serious: No
  Sender: FDA-Public Use
  Company Number: US-ABBOTT-08P-163-0443991-00

PATIENT
  Sex: Male
  Weight: 74.002 kg

DRUGS (7)
  1. KALETRA [Suspect]
     Indication: HIV INFECTION
     Route: 048
     Dates: start: 20010101
  2. TRUVADA [Concomitant]
     Indication: HIV INFECTION
  3. ABACAVIR SULFATE [Concomitant]
     Indication: HIV INFECTION
  4. ESCITALOPRAM OXALATE [Concomitant]
     Indication: DEPRESSION
  5. VALIUM [Concomitant]
     Indication: NYSTAGMUS
  6. LANSOPRAZOLE [Concomitant]
     Indication: GASTROOESOPHAGEAL REFLUX DISEASE
  7. FENOFIBRATE [Concomitant]
     Indication: BLOOD TRIGLYCERIDES INCREASED

REACTIONS (2)
  - ABDOMINAL DISCOMFORT [None]
  - ABDOMINAL DISTENSION [None]
